FAERS Safety Report 6257742-5 (Version None)
Quarter: 2009Q3

REPORT INFORMATION
  Report Type: 
  Country: None (occurrence: None)
  Receive Date: 20090706
  Receipt Date: 20090622
  Transmission Date: 20100115
  Serious: Yes (Hospitalization, Disabling)
  Sender: FDA-Public Use
  Company Number: GB-MYLANLABS-2009S1011072

PATIENT
  Age: 58 Year
  Sex: Male

DRUGS (5)
  1. BACLOFEN [Suspect]
     Indication: MULTIPLE SCLEROSIS
     Dates: start: 20010622, end: 20060812
  2. SATIVEX [Suspect]
     Indication: MULTIPLE SCLEROSIS
     Route: 002
     Dates: start: 20060222, end: 20060812
  3. ADCAL /00056901/ [Concomitant]
     Indication: VITAMIN D DEFICIENCY
     Route: 048
  4. ACETAMINOPHEN W/ CODEINE [Concomitant]
     Indication: PAIN
     Route: 048
     Dates: start: 20010622
  5. RISEDRONATE SODIUM [Concomitant]
     Indication: OSTEOPOROSIS
     Route: 048

REACTIONS (1)
  - ACUTE MYOCARDIAL INFARCTION [None]
